FAERS Safety Report 15301767 (Version 1)
Quarter: 2018Q3

REPORT INFORMATION
  Report Type: Spontaneous
  Country: US (occurrence: US)
  Receive Date: 20180821
  Receipt Date: 20180821
  Transmission Date: 20181010
  Serious: Yes (Life-Threatening, Hospitalization, Other)
  Sender: FDA-Public Use
  Company Number: PHHY2018US007255

PATIENT
  Age: 58 Year
  Sex: Female

DRUGS (29)
  1. IFOSFAMIDE. [Concomitant]
     Active Substance: IFOSFAMIDE
     Indication: LEIOMYOSARCOMA RECURRENT
     Dosage: 2500 MG/M2, OVER 24 HOURS ON DAYS 1 THROUGH 4
     Route: 042
  2. IFOSFAMIDE. [Concomitant]
     Active Substance: IFOSFAMIDE
     Dosage: 2500 MG/M2, OVER 12 HOURS ON DAY 5
     Route: 042
  3. NIFEDIPINE. [Concomitant]
     Active Substance: NIFEDIPINE
     Dosage: EXTENDED RELEASE EVERY MORNING
     Route: 048
  4. ONDANSETRON [Suspect]
     Active Substance: ONDANSETRON
     Indication: NAUSEA
     Dosage: 8 MG, Q8H
     Route: 042
  5. ONDANSETRON [Suspect]
     Active Substance: ONDANSETRON
     Indication: VOMITING
  6. THIAMINE [Concomitant]
     Active Substance: THIAMINE
     Indication: PROPHYLAXIS
     Dosage: 100 MG, QD
     Route: 042
  7. DOCUSATE [Concomitant]
     Active Substance: DOCUSATE
     Indication: CONSTIPATION
     Dosage: 50?8.6MG QD
     Route: 048
  8. NIFEDIPINE. [Concomitant]
     Active Substance: NIFEDIPINE
     Dosage: EXTENDED RELEASE EVERY EVENING
     Route: 048
  9. METOCLOPRAMIDE. [Concomitant]
     Active Substance: METOCLOPRAMIDE
     Indication: VOMITING
  10. PAROXETINE. [Concomitant]
     Active Substance: PAROXETINE
     Indication: GENERALISED ANXIETY DISORDER
     Dosage: 20 MG, QD
     Route: 048
  11. CLONIDINE. [Concomitant]
     Active Substance: CLONIDINE
     Indication: HYPERTENSION
     Dosage: 0.2 MG, BID
     Route: 048
  12. NIFEDIPINE. [Concomitant]
     Active Substance: NIFEDIPINE
     Indication: HYPERTENSION
     Dosage: 90 MG, EVERY EVENING
     Route: 048
  13. CLONIDINE. [Concomitant]
     Active Substance: CLONIDINE
     Indication: CONSTIPATION
  14. NIFEDIPINE. [Concomitant]
     Active Substance: NIFEDIPINE
     Dosage: 60 MG, EVERY MORNING
     Route: 048
  15. METHYLENE BLUE. [Suspect]
     Active Substance: METHYLENE BLUE
     Indication: NEUROTOXICITY
     Dosage: 50 MG, Q6H
     Route: 042
  16. METOCLOPRAMIDE. [Concomitant]
     Active Substance: METOCLOPRAMIDE
     Dosage: 10 MG, AT MEALS AND AT BEDTIME
     Route: 048
  17. OXYCODONE [Concomitant]
     Active Substance: OXYCODONE
     Dosage: 15 MG, BID
     Route: 048
  18. FLUCONAZOLE. [Concomitant]
     Active Substance: FLUCONAZOLE
     Dosage: 200 MG, QD
     Route: 048
  19. DOXORUBICIN [Concomitant]
     Active Substance: DOXORUBICIN
     Indication: LEIOMYOSARCOMA RECURRENT
     Dosage: 2500 MG/M2, OVER 24 HOURS ON DAYS 1 TO 3
     Route: 042
  20. MESNA. [Concomitant]
     Active Substance: MESNA
     Indication: LEIOMYOSARCOMA RECURRENT
     Dosage: 2500 MG/M2, OVER 24 HOURS ON DAYS 1 THROUGH 4
     Route: 042
  21. BISACODYL. [Concomitant]
     Active Substance: BISACODYL
     Indication: CONSTIPATION
     Dosage: 5 MG, QD
     Route: 048
  22. METOCLOPRAMIDE. [Concomitant]
     Active Substance: METOCLOPRAMIDE
     Indication: NAUSEA
     Dosage: AT MEALS AND AT BEDTIME FOR CHEMOTHERAPY?INDUCED NAUSEA AND VOMITING
     Route: 048
  23. OXYCODONE [Concomitant]
     Active Substance: OXYCODONE
     Indication: PAIN
  24. FLUCONAZOLE. [Concomitant]
     Active Substance: FLUCONAZOLE
     Indication: CANDIDA INFECTION
  25. THIAMINE [Concomitant]
     Active Substance: THIAMINE
     Dosage: 100 MG, Q4H
     Route: 042
  26. IFOSFAMIDE. [Concomitant]
     Active Substance: IFOSFAMIDE
     Dosage: 2500 MG/M2 OVER 24 HOURS FOR 4 DAYS
     Route: 042
  27. LOSARTAN. [Concomitant]
     Active Substance: LOSARTAN
     Indication: HYPERTENSION
     Dosage: 50 MG, QD
     Route: 048
  28. DEXAMETHASONE. [Concomitant]
     Active Substance: DEXAMETHASONE
     Indication: PRODUCT USED FOR UNKNOWN INDICATION
     Dosage: 18 MG, UNK
     Route: 048
  29. PAROXETINE. [Concomitant]
     Active Substance: PAROXETINE
     Indication: DEPRESSION

REACTIONS (10)
  - Hypertension [Unknown]
  - Hyperhidrosis [Unknown]
  - Aggression [Unknown]
  - Serotonin syndrome [Recovered/Resolved]
  - Hyperreflexia [Unknown]
  - Myoclonus [Unknown]
  - Sinus tachycardia [Unknown]
  - Tremor [Unknown]
  - Pyrexia [Unknown]
  - Clonus [Unknown]
